FAERS Safety Report 20895082 (Version 1)
Quarter: 2022Q2

REPORT INFORMATION
  Report Type: Report from Study
  Country: MX (occurrence: MX)
  Receive Date: 20220531
  Receipt Date: 20220531
  Transmission Date: 20220721
  Serious: Yes (Other)
  Sender: FDA-Public Use
  Company Number: MX-JNJFOC-20210802346

PATIENT
  Age: 32 Year
  Sex: Female
  Weight: 68 kg

DRUGS (3)
  1. ESKETAMINE [Suspect]
     Active Substance: ESKETAMINE
     Indication: Depression
     Dates: start: 20210628, end: 20210726
  2. VORTIOXETINE [Concomitant]
     Active Substance: VORTIOXETINE
     Indication: Depression
     Dosage: EXPOSURE TIME IN GESTATIONAL WEEKS: 5
     Route: 048
     Dates: start: 20210121
  3. ATOMOXETINE [Concomitant]
     Active Substance: ATOMOXETINE
     Indication: Attention deficit hyperactivity disorder
     Dosage: EXPOSURE TIME IN GESTATIONAL WEEKS: 34 WEEKS
     Route: 048

REACTIONS (3)
  - Premature labour [Recovered/Resolved]
  - Exposure during pregnancy [Recovered/Resolved]
  - Somnolence [Unknown]

NARRATIVE: CASE EVENT DATE: 20210701
